FAERS Safety Report 7720586-9 (Version None)
Quarter: 2011Q3

REPORT INFORMATION
  Report Type: 
  Country: None (occurrence: None)
  Receive Date: 20110831
  Receipt Date: 20110823
  Transmission Date: 20111222
  Serious: Yes (Other)
  Sender: FDA-Public Use
  Company Number: PHEH2011US02426

PATIENT
  Sex: Male
  Weight: 68.027 kg

DRUGS (2)
  1. EXJADE [Suspect]
     Indication: IRON OVERLOAD
     Dosage: 3 DF, EVERY DAY
     Route: 048
     Dates: start: 20110722
  2. DIFLUCAN [Concomitant]
     Route: 042

REACTIONS (2)
  - WHITE BLOOD CELL COUNT DECREASED [None]
  - MOUTH ULCERATION [None]
